FAERS Safety Report 20970255 (Version 1)
Quarter: 2022Q2

REPORT INFORMATION
  Report Type: Spontaneous
  Country: US (occurrence: US)
  Receive Date: 20220616
  Receipt Date: 20220616
  Transmission Date: 20220720
  Serious: No
  Sender: FDA-Public Use
  Company Number: US-SA-SAC20220607000708

PATIENT
  Age: 22 Year
  Sex: Female

DRUGS (11)
  1. DUPIXENT [Suspect]
     Active Substance: DUPILUMAB
     Indication: Dermatitis atopic
     Dosage: 300 MG, QOW
     Route: 058
     Dates: start: 20220310, end: 20220310
  2. ERYTHROMYCIN [Concomitant]
     Active Substance: ERYTHROMYCIN
  3. FAMOTIDINE [Concomitant]
     Active Substance: FAMOTIDINE
  4. PREDNISONE [Concomitant]
     Active Substance: PREDNISONE
  5. LEVOCETIRIZINE [Concomitant]
     Active Substance: LEVOCETIRIZINE
  6. PIMECROLIMUS [Concomitant]
     Active Substance: PIMECROLIMUS
  7. TRIAMCINOLONE ACETONIDE [Concomitant]
     Active Substance: TRIAMCINOLONE ACETONIDE
  8. MUPIROCIN [Concomitant]
     Active Substance: MUPIROCIN
  9. EUCRISA [Concomitant]
     Active Substance: CRISABOROLE
  10. CLOBETASOL PROPIONATE [Concomitant]
     Active Substance: CLOBETASOL PROPIONATE
  11. DESONIDE [Concomitant]
     Active Substance: DESONIDE

REACTIONS (2)
  - Eye swelling [Unknown]
  - Swelling face [Unknown]

NARRATIVE: CASE EVENT DATE: 20220101
